FAERS Safety Report 19197863 (Version 2)
Quarter: 2021Q2

REPORT INFORMATION
  Report Type: Spontaneous
  Country: US (occurrence: US)
  Receive Date: 20210429
  Receipt Date: 20210518
  Transmission Date: 20210717
  Serious: Yes (Disabling, Other)
  Sender: FDA-Public Use
  Company Number: US-ALLERGAN-2114901US

PATIENT
  Sex: Female

DRUGS (7)
  1. OMEGA 3 FATTY ACIDS UNK [Suspect]
     Active Substance: OMEGA-3 FATTY ACIDS
     Indication: PRODUCT USED FOR UNKNOWN INDICATION
     Dosage: UNK
     Dates: end: 2020
  2. BYSTOLIC [Suspect]
     Active Substance: NEBIVOLOL HYDROCHLORIDE
     Indication: HYPERTENSION
     Dosage: ACTUAL:SPLIT THE PILL IN HALF, HALF IN THE MORNING AND HALF AT NIGHT
     Route: 048
     Dates: start: 2020, end: 20200815
  3. BYSTOLIC [Suspect]
     Active Substance: NEBIVOLOL HYDROCHLORIDE
     Dosage: 10MG TABLET AND CUT IN HALF, T HALF IN MORNING AND SECOND HALF AT NIGH
     Route: 048
     Dates: start: 20200722
  4. AMLODIPINE AND VALSARTAN [Concomitant]
     Active Substance: AMLODIPINE\VALSARTAN
     Indication: ATRIAL FIBRILLATION
     Dosage: UNK
     Dates: end: 202104
  5. ELIQUIS [Concomitant]
     Active Substance: APIXABAN
  6. VITAMINS NOS [Suspect]
     Active Substance: VITAMINS
     Indication: PRODUCT USED FOR UNKNOWN INDICATION
     Dosage: UNK
     Dates: end: 2020
  7. AMLODIPINE AND VALSARTAN [Concomitant]
     Active Substance: AMLODIPINE\VALSARTAN
     Indication: HYPERTENSION

REACTIONS (11)
  - Dizziness [Recovered/Resolved]
  - Drug hypersensitivity [Unknown]
  - Feeling abnormal [Recovered/Resolved]
  - Hypertension [Recovered/Resolved]
  - Pain [Recovered/Resolved]
  - Loss of personal independence in daily activities [Recovered/Resolved]
  - Balance disorder [Recovered/Resolved]
  - Condition aggravated [Recovered/Resolved]
  - Fatigue [Recovered/Resolved]
  - Wrong technique in product usage process [Unknown]
  - Muscle spasms [Unknown]

NARRATIVE: CASE EVENT DATE: 202007
